FAERS Safety Report 5287979-3 (Version None)
Quarter: 2007Q2

REPORT INFORMATION
  Report Type: 
  Country: None (occurrence: None)
  Receive Date: 20070405
  Receipt Date: 20070329
  Transmission Date: 20071010
  Serious: Yes (Other)
  Sender: FDA-Public Use
  Company Number: US-JNJFOC-20070400264

PATIENT
  Sex: Female
  Weight: 44.91 kg

DRUGS (2)
  1. LEVAQUIN [Suspect]
     Indication: LOCALISED INFECTION
     Route: 048
  2. ASACOL [Concomitant]
     Indication: COLITIS
     Route: 065

REACTIONS (5)
  - COLITIS ULCERATIVE [None]
  - DIARRHOEA [None]
  - NAUSEA [None]
  - NEUROPATHY [None]
  - PAIN [None]
